FAERS Safety Report 4436117-5 (Version None)
Quarter: 2004Q3

REPORT INFORMATION
  Report Type: 
  Country: None (occurrence: None)
  Receive Date: 20040726
  Receipt Date: 20040402
  Transmission Date: 20050211
  Serious: No
  Sender: FDA-Public Use
  Company Number: USA030330745

PATIENT
  Age: 58 Year
  Sex: Female
  Weight: 50 kg

DRUGS (5)
  1. FORTEO [Suspect]
     Indication: OSTEOPOROSIS
     Dosage: 20 UG/DAY
     Route: 048
     Dates: start: 20030302
  2. PREDNISONE [Concomitant]
  3. LASIX [Concomitant]
  4. PROTONIX [Concomitant]
  5. VERAPAMIL [Concomitant]

REACTIONS (6)
  - BACK PAIN [None]
  - CARDIAC FLUTTER [None]
  - DIZZINESS [None]
  - MUSCLE CRAMP [None]
  - NAUSEA [None]
  - PALPITATIONS [None]
